FAERS Safety Report 19269448 (Version 1)
Quarter: 2021Q2

REPORT INFORMATION
  Report Type: Report from Study
  Country: AU (occurrence: AU)
  Receive Date: 20210517
  Receipt Date: 20210517
  Transmission Date: 20210717
  Serious: Yes (Other)
  Sender: FDA-Public Use
  Company Number: AU-JNJFOC-20210526322

PATIENT
  Age: 56 Year
  Sex: Female

DRUGS (1)
  1. REMICADE [Suspect]
     Active Substance: INFLIXIMAB
     Indication: CROHN^S DISEASE
     Dosage: WEIGHT DEPENDENT
     Route: 042
     Dates: end: 201912

REACTIONS (2)
  - Metastases to lung [Unknown]
  - Metastases to bone [Unknown]
